FAERS Safety Report 21251371 (Version 3)
Quarter: 2022Q4

REPORT INFORMATION
  Report Type: Spontaneous
  Country: US (occurrence: US)
  Receive Date: 20220825
  Receipt Date: 20221011
  Transmission Date: 20230113
  Serious: Yes (Hospitalization)
  Sender: FDA-Public Use
  Company Number: US-BEH-2022148783

PATIENT
  Age: 7 Year
  Sex: Male

DRUGS (7)
  1. IDELVION [Suspect]
     Active Substance: COAGULATION FACTOR IX RECOMBINANT HUMAN
     Indication: Acquired haemophilia
     Dosage: 1314 INTERNATIONAL UNIT, PRN
     Route: 042
  2. IDELVION [Suspect]
     Active Substance: COAGULATION FACTOR IX RECOMBINANT HUMAN
     Indication: Acquired haemophilia
     Dosage: 1314 INTERNATIONAL UNIT, PRN
     Route: 042
  3. IDELVION [Suspect]
     Active Substance: COAGULATION FACTOR IX RECOMBINANT HUMAN
     Indication: Factor IX deficiency
     Dosage: 1000 INTERNATIONAL UNIT, QW
     Route: 042
  4. IDELVION [Suspect]
     Active Substance: COAGULATION FACTOR IX RECOMBINANT HUMAN
     Indication: Factor IX deficiency
     Dosage: 1000 INTERNATIONAL UNIT, QW
     Route: 042
  5. BENEFIX [Concomitant]
     Active Substance: COAGULATION FACTOR IX RECOMBINANT HUMAN\ISOPROPYL ALCOHOL
     Dosage: 500 INTERNATIONAL UNIT
  6. BENEFIX [Concomitant]
     Active Substance: COAGULATION FACTOR IX RECOMBINANT HUMAN\ISOPROPYL ALCOHOL
     Dosage: 1000 UNK
  7. SODIUM CHLORIDE [Concomitant]
     Active Substance: SODIUM CHLORIDE

REACTIONS (5)
  - Traumatic haemorrhage [Recovered/Resolved]
  - Haemarthrosis [Recovered/Resolved]
  - No adverse event [Unknown]
  - Off label use [Unknown]
  - Traumatic haemorrhage [Unknown]

NARRATIVE: CASE EVENT DATE: 20220701
